FAERS Safety Report 15104235 (Version 1)
Quarter: 2018Q3

REPORT INFORMATION
  Report Type: Spontaneous
  Country: IL (occurrence: IL)
  Receive Date: 20180703
  Receipt Date: 20180703
  Transmission Date: 20181010
  Serious: Yes (Hospitalization, Other)
  Sender: FDA-Public Use
  Company Number: IL-SA-2018SA155520

PATIENT
  Age: 52 Year
  Sex: Male

DRUGS (4)
  1. STREPTOMYCIN [Concomitant]
     Active Substance: STREPTOMYCIN\STREPTOMYCIN SULFATE
     Indication: TUBERCULOSIS
     Dosage: 1 G, QOD
     Route: 030
  2. RIFAMPICIN [Suspect]
     Active Substance: RIFAMPIN
     Indication: TUBERCULOSIS
     Dosage: 600 MG, QD
  3. PYRAZINAMIDE. [Suspect]
     Active Substance: PYRAZINAMIDE
     Indication: TUBERCULOSIS
     Dosage: 500 MG, TID
  4. ISONIAZID. [Suspect]
     Active Substance: ISONIAZID
     Indication: TUBERCULOSIS
     Dosage: 300 MG, QD

REACTIONS (5)
  - Granulomatous liver disease [Recovered/Resolved]
  - Pyrexia [Recovered/Resolved]
  - Hyperuricaemia [Recovered/Resolved]
  - Fatigue [Recovered/Resolved]
  - Chills [Recovered/Resolved]
